FAERS Safety Report 7449936-8 (Version None)
Quarter: 2011Q2

REPORT INFORMATION
  Report Type: 
  Country: None (occurrence: None)
  Receive Date: 20110502
  Receipt Date: 20110421
  Transmission Date: 20111010
  Serious: Yes (Other)
  Sender: FDA-Public Use
  Company Number: US-JNJFOC-20110410512

PATIENT
  Sex: Male
  Weight: 104.33 kg

DRUGS (9)
  1. ATENOLOL [Interacting]
     Indication: HYPERTENSION
     Route: 048
  2. FLOMAX [Concomitant]
     Indication: URINE ABNORMALITY
     Route: 048
  3. DITROPAN XL [Suspect]
     Indication: INCONTINENCE
     Dosage: AFTER 3 OR 4 YEARS
     Route: 048
  4. DITROPAN XL [Suspect]
     Route: 048
  5. NORVASC [Interacting]
     Indication: HYPERTENSION
     Route: 048
  6. DITROPAN XL [Suspect]
     Route: 048
  7. DITROPAN XL [Suspect]
     Route: 048
  8. ATACAND [Interacting]
     Indication: HYPERTENSION
     Route: 065
  9. UROXATRAL [Interacting]
     Indication: URINE ABNORMALITY
     Route: 048

REACTIONS (6)
  - DRY MOUTH [None]
  - HYPERTENSION [None]
  - DRUG INTERACTION [None]
  - DRY THROAT [None]
  - LUNG DISORDER [None]
  - DRUG INEFFECTIVE [None]
